FAERS Safety Report 16108499 (Version 3)
Quarter: 2019Q2

REPORT INFORMATION
  Report Type: Report from Study
  Country: None (occurrence: US)
  Receive Date: 20190323
  Receipt Date: 20190615
  Transmission Date: 20190711
  Serious: Yes (Death, Hospitalization, Other)
  Sender: FDA-Public Use
  Company Number: US-ABBVIE-19K-163-2709782-00

PATIENT
  Sex: Male
  Weight: 68.1 kg

DRUGS (4)
  1. FLOMAX [Concomitant]
     Active Substance: TAMSULOSIN HYDROCHLORIDE
     Indication: PROSTATIC DISORDER
  2. CIALIS [Concomitant]
     Active Substance: TADALAFIL
     Indication: PROSTATIC DISORDER
  3. CLARIXIN [Concomitant]
     Indication: HYPERSENSITIVITY
  4. HUMIRA [Suspect]
     Active Substance: ADALIMUMAB
     Indication: RHEUMATOID ARTHRITIS
     Route: 058
     Dates: start: 201812

REACTIONS (12)
  - Arrhythmia [Unknown]
  - Intracranial aneurysm [Not Recovered/Not Resolved]
  - Cerebral disorder [Not Recovered/Not Resolved]
  - Coma [Not Recovered/Not Resolved]
  - Brain injury [Not Recovered/Not Resolved]
  - Pneumonia [Fatal]
  - Loss of consciousness [Not Recovered/Not Resolved]
  - Weight decreased [Not Recovered/Not Resolved]
  - Influenza [Recovered/Resolved]
  - Dyspnoea [Not Recovered/Not Resolved]
  - Malaise [Unknown]
  - Apallic syndrome [Not Recovered/Not Resolved]

NARRATIVE: CASE EVENT DATE: 201902
